FAERS Safety Report 25852320 (Version 1)
Quarter: 2025Q3

REPORT INFORMATION
  Report Type: Spontaneous
  Country: US (occurrence: None)
  Receive Date: 20250925
  Receipt Date: 20250925
  Transmission Date: 20251020
  Serious: Yes (Hospitalization)
  Sender: FDA-CTU
  Company Number: None

PATIENT
  Sex: Male

DRUGS (11)
  1. VYNDAMAX [Suspect]
     Active Substance: TAFAMIDIS
     Dosage: TAKE 1 CAPSULE BY MOUTH IN THE MORNING
     Route: 048
     Dates: start: 20250227
  2. AMOXICILLIN [Concomitant]
     Active Substance: AMOXICILLIN
  3. ANDROGEL GEL PUMP 1% [Concomitant]
  4. CARVEDILOL TAB 3.125MG [Concomitant]
  5. CIALIS TAB5MG [Concomitant]
  6. COLCHICINE CAP 0.6MG [Concomitant]
  7. CRESTOR [Concomitant]
     Active Substance: ROSUVASTATIN CALCIUM
  8. ELIQUIS [Concomitant]
     Active Substance: APIXABAN
  9. HYDROCHLOROT CAP 12.5MG [Concomitant]
  10. ACETAMINOPHEN\HYDROCODONE [Concomitant]
     Active Substance: ACETAMINOPHEN\HYDROCODONE
  11. INDOMETHACIN CAP 75MG ER [Concomitant]

REACTIONS (1)
  - Hospitalisation [None]
